FAERS Safety Report 10183390 (Version 4)
Quarter: 2014Q3

REPORT INFORMATION
  Report Type: Spontaneous
  Country: JP (occurrence: JP)
  Receive Date: 20140520
  Receipt Date: 20140714
  Transmission Date: 20150326
  Serious: Yes (Hospitalization)
  Sender: FDA-Public Use
  Company Number: JP-MALLINCKRODT-T201402194

PATIENT
  Age: 74 Year
  Sex: Female
  Weight: 39.6 kg

DRUGS (6)
  1. ZOSYN [Suspect]
     Active Substance: PIPERACILLIN SODIUM\TAZOBACTAM SODIUM
     Indication: PNEUMONIA
     Dosage: 4.5 G, UNK
     Route: 042
     Dates: start: 20140309, end: 20140315
  2. PACETCOOL [Suspect]
     Active Substance: CEFOTIAM HYDROCHLORIDE
     Indication: ANTIBIOTIC PROPHYLAXIS
     Dosage: 2 G, UNK
     Route: 042
     Dates: start: 20140306, end: 20140308
  3. OFIRMEV [Suspect]
     Active Substance: ACETAMINOPHEN
     Indication: POSTOPERATIVE ANALGESIA
     Dosage: 500 MG, (1 IN 1 DAY)
     Route: 042
     Dates: start: 20140308, end: 20140308
  4. VOLTAREN [Suspect]
     Active Substance: DICLOFENAC SODIUM
     Indication: PRODUCT USED FOR UNKNOWN INDICATION
     Dosage: 25 MG (1 IN 1 DAY)
     Route: 054
     Dates: start: 20140308, end: 20140308
  5. ROPION [Suspect]
     Active Substance: FLURBIPROFEN AXETIL
     Indication: PRODUCT USED FOR UNKNOWN INDICATION
     Dosage: 50 MG (5 ML, 1 IN 1 DAY)
     Route: 042
     Dates: start: 20140308, end: 20140308
  6. SOSEGON [Suspect]
     Active Substance: PENTAZOCINE
     Indication: ANALGESIC THERAPY
     Dosage: 7.5 MG UNK
     Route: 042
     Dates: start: 20140308, end: 20140308

REACTIONS (1)
  - Interstitial lung disease [Recovered/Resolved]

NARRATIVE: CASE EVENT DATE: 20140309
